FAERS Safety Report 11848545 (Version 3)
Quarter: 2016Q2

REPORT INFORMATION
  Report Type: Report from Study
  Country: CA (occurrence: CA)
  Receive Date: 20151218
  Receipt Date: 20160623
  Transmission Date: 20160815
  Serious: Yes (Hospitalization, Other)
  Sender: FDA-Public Use
  Company Number: CA-AMGEN-CANSL2015054876

PATIENT
  Age: 89 Year
  Sex: Female

DRUGS (1)
  1. PROLIA [Suspect]
     Active Substance: DENOSUMAB
     Indication: OSTEOPOROSIS POSTMENOPAUSAL
     Dosage: 60 MG/ML, UNK
     Route: 058
     Dates: start: 20150603

REACTIONS (14)
  - Diarrhoea [Unknown]
  - Gastric disorder [Unknown]
  - Gastritis [Unknown]
  - Eye disorder [Unknown]
  - Nausea [Unknown]
  - Hypertension [Unknown]
  - Angina pectoris [Unknown]
  - Eye pain [Unknown]
  - Vomiting [Unknown]
  - Foreign body [Unknown]
  - Headache [Unknown]
  - Injection site pain [Unknown]
  - Dyspnoea [Unknown]
  - Malaise [Unknown]

NARRATIVE: CASE EVENT DATE: 201506
